FAERS Safety Report 5676766-X (Version None)
Quarter: 2008Q2

REPORT INFORMATION
  Report Type: 
  Country: None (occurrence: None)
  Receive Date: 20080311
  Receipt Date: 20080107
  Transmission Date: 20081010
  Serious: No
  Sender: FDA-Public Use
  Company Number: 002#2#2008-00001

PATIENT
  Age: 53 Year
  Sex: Female
  Weight: 73.9363 kg

DRUGS (8)
  1. NEUPRO [Suspect]
     Indication: PARKINSON'S DISEASE
     Dosage: 6MG/24H,1 IN 1 D,TRANSDERMAL
     Route: 062
     Dates: start: 20071218, end: 20080106
  2. FLAGYL [Concomitant]
  3. SOMA [Concomitant]
  4. ZANAFLEX [Concomitant]
  5. LYRICA [Concomitant]
  6. BONIVA [Concomitant]
  7. REQUIP [Concomitant]
  8. FOSAMAX [Concomitant]

REACTIONS (2)
  - NAUSEA [None]
  - VOMITING [None]
